FAERS Safety Report 5479168-4 (Version None)
Quarter: 2007Q4

REPORT INFORMATION
  Report Type: 
  Country: None (occurrence: None)
  Receive Date: 20071002
  Receipt Date: 20070919
  Transmission Date: 20080405
  Serious: Yes (Death, Hospitalization)
  Sender: FDA-Public Use
  Company Number: GXKR2007GB08268

PATIENT
  Age: 30 Year
  Sex: Female

DRUGS (1)
  1. WARFARIN SODIUM [Suspect]
     Indication: PULMONARY THROMBOSIS
     Dosage: 1 MG, QD, ORAL
     Route: 048
     Dates: start: 20060901

REACTIONS (8)
  - BREATHING-RELATED SLEEP DISORDER [None]
  - COUGH [None]
  - DYSPNOEA [None]
  - INFLAMMATION [None]
  - JOINT SWELLING [None]
  - OEDEMA PERIPHERAL [None]
  - PULMONARY HYPERTENSION [None]
  - SKIN ULCER [None]
